FAERS Safety Report 20659636 (Version 3)
Quarter: 2022Q2

REPORT INFORMATION
  Report Type: Spontaneous
  Country: FR (occurrence: FR)
  Receive Date: 20220331
  Receipt Date: 20220628
  Transmission Date: 20220721
  Serious: Yes (Other)
  Sender: FDA-Public Use
  Company Number: CH-AMERICAN REGENT INC-2022000905

PATIENT
  Age: 54 Year
  Sex: Female

DRUGS (7)
  1. FERINJECT [Suspect]
     Active Substance: FERRIC CARBOXYMALTOSE
     Indication: Iron deficiency
     Dosage: 1000 MG, 1 TOTAL, DILUTED IN 250 ML OF 0.9% NACL AND WAS INFUSED OVER A PERIOD OF 35 TO 40 MINUTES
     Dates: start: 20220314, end: 20220314
  2. METOPROLOL [Concomitant]
     Active Substance: METOPROLOL
     Indication: Product used for unknown indication
     Dosage: 2 TABLETS IN THE MORNING (2 IN 1D)
     Route: 065
  3. BROMAZEPAM [Concomitant]
     Active Substance: BROMAZEPAM
     Indication: Product used for unknown indication
     Dosage: 1/2 TABLET IN RESERVE
     Route: 065
  4. OMEPRAZOLE [Concomitant]
     Active Substance: OMEPRAZOLE
     Indication: Product used for unknown indication
     Dosage: 1 TABLET IN RESERVE (1 IN 1D)
     Route: 065
  5. CALCIMAGON [CALCIUM] [Concomitant]
     Indication: Product used for unknown indication
     Dosage: 1 TABLET/DAY (1 IN 1D)
     Route: 065
  6. DAFALGAN [Concomitant]
     Active Substance: ACETAMINOPHEN
     Indication: Pain
     Dosage: IN CASE OF PAIN
     Route: 065
  7. MEFENAMIC ACID [Concomitant]
     Active Substance: MEFENAMIC ACID
     Indication: Headache
     Dosage: IN CASE OF HEADACHE
     Route: 065

REACTIONS (3)
  - Infusion site thrombosis [Recovered/Resolved]
  - Serum ferritin increased [Recovered/Resolved]
  - Iron deficiency [Recovered/Resolved]

NARRATIVE: CASE EVENT DATE: 20220317
